FAERS Safety Report 20037702 (Version 3)
Quarter: 2021Q4

REPORT INFORMATION
  Report Type: Spontaneous
  Country: IN (occurrence: IN)
  Receive Date: 20211105
  Receipt Date: 20211119
  Transmission Date: 20220304
  Serious: Yes (Hospitalization)
  Sender: FDA-Public Use
  Company Number: IN-TORRENT-00002938

PATIENT
  Age: 79 Year
  Sex: Male

DRUGS (7)
  1. ESOMEPRAZOLE [Suspect]
     Active Substance: ESOMEPRAZOLE
     Indication: Product used for unknown indication
     Dosage: TWO TIMES DAILY (BD) (MORNING AND EVENING)
     Route: 042
  2. Clopivas AP 75 [Concomitant]
     Indication: Product used for unknown indication
     Dosage: PO (PER ORAL)?0-1-0 (IN NOON)
     Route: 048
  3. ASPIRIN [Concomitant]
     Active Substance: ASPIRIN
     Indication: Product used for unknown indication
     Dosage: PO (PER ORAL)?0-0-1 (ONCE DAILY AT NIGHT)
     Route: 048
  4. LASIX [Concomitant]
     Active Substance: FUROSEMIDE
     Indication: Product used for unknown indication
     Dosage: OD (ONCE DAILY)
     Route: 042
  5. Sumuka [Concomitant]
     Indication: Product used for unknown indication
     Dosage: 2 TIMES DAILY (BD))
     Route: 042
  6. Thromboclear [Concomitant]
     Indication: Product used for unknown indication
     Dosage: OD (ONCE DAILY)
     Route: 058
  7. CEFOPERAZONE SODIUM\SULBACTAM SODIUM [Concomitant]
     Active Substance: CEFOPERAZONE SODIUM\SULBACTAM SODIUM
     Indication: Product used for unknown indication
     Dosage: THREE TIMES DAILY (TDS) ZOSTUM 1.5 MG; 100 UL

REACTIONS (1)
  - Hypoglycaemia [Recovered/Resolved]

NARRATIVE: CASE EVENT DATE: 20211021
